FAERS Safety Report 4951650-5 (Version None)
Quarter: 2006Q1

REPORT INFORMATION
  Report Type: 
  Country: None (occurrence: None)
  Receive Date: 20060322
  Receipt Date: 20060322
  Transmission Date: 20060701
  Serious: Yes (Life-Threatening)
  Sender: FDA-Public Use
  Company Number: None

PATIENT
  Age: 76 Year
  Sex: Male
  Weight: 74.8 kg

DRUGS (1)
  1. SIMVASTATIN [Suspect]
     Indication: HYPERLIPIDAEMIA
     Dosage: 80 MG QD PO [2 WEEKS] { 40 MG QD FOR YEARS}
     Route: 048

REACTIONS (2)
  - BRADYCARDIA [None]
  - RHABDOMYOLYSIS [None]
